FAERS Safety Report 7380343-2 (Version None)
Quarter: 2011Q1

REPORT INFORMATION
  Report Type: 
  Country: None (occurrence: None)
  Receive Date: 20110318
  Receipt Date: 20110303
  Transmission Date: 20110831
  Serious: Yes (Death, Life-Threatening)
  Sender: FDA-Public Use
  Company Number: AUR-APL-2011-00865

PATIENT
  Age: 65 Year
  Sex: Male

DRUGS (8)
  1. CISPLATIN [Suspect]
     Dosage: INTRAVENOUS
     Route: 042
     Dates: start: 20101221, end: 20110225
  2. ONDANSETRON [Suspect]
     Dosage: 8MG-ORAL
     Route: 048
  3. PEMETREXED [Suspect]
     Dosage: INTRAVENOUS
     Route: 042
     Dates: start: 20101221, end: 20110225
  4. APREPITANT [Suspect]
     Dosage: INTRAVENOUS
     Route: 042
     Dates: start: 20110225, end: 20110225
  5. DALTEPARIN SODIUM [Suspect]
     Indication: LUNG NEOPLASM MALIGNANT
     Dates: start: 20101220, end: 20110225
  6. DEXAMETHASONE [Suspect]
     Dosage: 4MG - ORAL
     Route: 048
     Dates: end: 20110225
  7. MORPHINE [Suspect]
     Dosage: 30MG-ORAL
     Route: 048
  8. PARACETAMOL [Concomitant]

REACTIONS (7)
  - ABDOMINAL PAIN [None]
  - NAUSEA [None]
  - PERITONITIS [None]
  - C-REACTIVE PROTEIN INCREASED [None]
  - NEOPLASM MALIGNANT [None]
  - LARGE INTESTINE PERFORATION [None]
  - FAECALOMA [None]
